FAERS Safety Report 4797975-8 (Version None)
Quarter: 2005Q3

REPORT INFORMATION
  Report Type: 
  Country: None (occurrence: None)
  Receive Date: 20050929
  Receipt Date: 20050830
  Transmission Date: 20060218
  Serious: No
  Sender: FDA-Public Use
  Company Number: 05P-163-0309748

PATIENT
  Age: 66 Year
  Sex: Female
  Weight: 60.782 kg

DRUGS (9)
  1. HUMIRA [Suspect]
     Indication: RHEUMATOID ARTHRITIS
     Dosage: 40 MG, 1 IN 2 WK, SUBCUTANEOUS
     Route: 058
     Dates: start: 20040901
  2. LEVOTHYROXINE SODIUM [Concomitant]
  3. METOPROLOL SUCCINATE [Concomitant]
  4. ALENDRONATE SODIUM [Concomitant]
  5. ETODOLAC [Concomitant]
  6. METHOTREXATE [Concomitant]
  7. FOLIC ACID [Concomitant]
  8. CALCIUM WITH VITAMIN D [Concomitant]
  9. ASPIRIN [Concomitant]

REACTIONS (7)
  - EAR INFECTION [None]
  - GINGIVAL ULCERATION [None]
  - HERPES SIMPLEX [None]
  - HERPES ZOSTER [None]
  - NEUROPATHY PERIPHERAL [None]
  - SKIN INFECTION [None]
  - TYMPANIC MEMBRANE PERFORATION [None]
